FAERS Safety Report 25343016 (Version 1)
Quarter: 2025Q2

REPORT INFORMATION
  Report Type: Other
  Country: CN (occurrence: CN)
  Receive Date: 20250521
  Receipt Date: 20250521
  Transmission Date: 20250716
  Serious: Yes (Other)
  Sender: INNOVIVA
  Company Number: CN-ISTX-2025-ISTX-000062

PATIENT
  Age: 68 Year
  Sex: Female

DRUGS (1)
  1. ZEVTERA [Suspect]
     Active Substance: CEFTOBIPROLE MEDOCARIL SODIUM
     Indication: Pneumonia
     Dosage: 500 MG, BID
     Route: 041
     Dates: start: 20250418, end: 20250424

REACTIONS (1)
  - Metabolic encephalopathy [Recovered/Resolved]

NARRATIVE: CASE EVENT DATE: 20250424
